FAERS Safety Report 4958863-7 (Version None)
Quarter: 2006Q1

REPORT INFORMATION
  Report Type: 
  Country: None (occurrence: None)
  Receive Date: 20060331
  Receipt Date: 20060201
  Transmission Date: 20060701
  Serious: Yes (Disabling)
  Sender: FDA-Public Use
  Company Number: JP-BOEHRINGER INGELHEIM PHARMACEUTICALS, INC.-2006-BP-01246NB

PATIENT
  Sex: Male
  Weight: 60 kg

DRUGS (5)
  1. MICARDIS [Suspect]
     Indication: HYPERTENSION
     Route: 048
     Dates: start: 20040116, end: 20040726
  2. NORVASC [Suspect]
     Indication: HYPERTENSION
     Route: 048
     Dates: start: 20040309, end: 20040726
  3. INSULIN [Concomitant]
     Indication: DIABETES MELLITUS
     Dosage: 6-12 U
     Route: 065
     Dates: start: 20030202
  4. GLAKAY [Concomitant]
     Indication: OSTEOPOROSIS
     Route: 048
  5. PARIET [Concomitant]
     Indication: GASTRITIS
     Route: 048

REACTIONS (1)
  - CEREBRAL INFARCTION [None]
